FAERS Safety Report 9206390 (Version 3)
Quarter: 2015Q1

REPORT INFORMATION
  Report Type: Spontaneous
  Country: US (occurrence: US)
  Receive Date: 20130403
  Receipt Date: 20150225
  Transmission Date: 20150721
  Serious: Yes (Other)
  Sender: FDA-Public Use
  Company Number: US-PFIZER INC-2013102301

PATIENT
  Age: 86 Year
  Sex: Male

DRUGS (1)
  1. XALATAN [Suspect]
     Active Substance: LATANOPROST
     Indication: GLAUCOMA
     Dosage: 0.005%, 2.5 ML, 1X/DAY

REACTIONS (3)
  - Hypoacusis [Unknown]
  - Abasia [Unknown]
  - Malaise [Unknown]
